FAERS Safety Report 25234427 (Version 1)
Quarter: 2025Q2

REPORT INFORMATION
  Report Type: Spontaneous
  Country: FR (occurrence: FR)
  Receive Date: 20250424
  Receipt Date: 20250424
  Transmission Date: 20250717
  Serious: Yes (Hospitalization)
  Sender: MYLAN
  Company Number: None

PATIENT
  Age: 84 Year
  Sex: Female

DRUGS (8)
  1. OXALIPLATIN [Suspect]
     Active Substance: OXALIPLATIN
     Indication: Rectal cancer
     Dosage: 130 MILLIGRAM, QD
     Dates: start: 20250310, end: 20250310
  2. OXALIPLATIN [Suspect]
     Active Substance: OXALIPLATIN
     Dosage: 130 MILLIGRAM, QD
     Route: 042
     Dates: start: 20250310, end: 20250310
  3. OXALIPLATIN [Suspect]
     Active Substance: OXALIPLATIN
     Dosage: 130 MILLIGRAM, QD
     Route: 042
     Dates: start: 20250310, end: 20250310
  4. OXALIPLATIN [Suspect]
     Active Substance: OXALIPLATIN
     Dosage: 130 MILLIGRAM, QD
     Dates: start: 20250310, end: 20250310
  5. FLUOROURACIL [Suspect]
     Active Substance: FLUOROURACIL
     Indication: Rectal cancer
     Dosage: 2750 MILLIGRAM, QOD
     Dates: start: 20250310, end: 20250310
  6. FLUOROURACIL [Suspect]
     Active Substance: FLUOROURACIL
     Dosage: 2750 MILLIGRAM, QOD
     Route: 042
     Dates: start: 20250310, end: 20250310
  7. FLUOROURACIL [Suspect]
     Active Substance: FLUOROURACIL
     Dosage: 2750 MILLIGRAM, QOD
     Route: 042
     Dates: start: 20250310, end: 20250310
  8. FLUOROURACIL [Suspect]
     Active Substance: FLUOROURACIL
     Dosage: 2750 MILLIGRAM, QOD
     Dates: start: 20250310, end: 20250310

REACTIONS (2)
  - Pleural effusion [Recovered/Resolved]
  - Extravasation [Recovered/Resolved]

NARRATIVE: CASE EVENT DATE: 20250310
